FAERS Safety Report 23535508 (Version 3)
Quarter: 2024Q1

REPORT INFORMATION
  Report Type: Spontaneous
  Country: US (occurrence: None)
  Receive Date: 20240218
  Receipt Date: 20240321
  Transmission Date: 20240410
  Serious: No
  Sender: FDA-Public Use
  Company Number: 2024A036625

PATIENT
  Age: 79 Year
  Sex: Female

DRUGS (1)
  1. BYDUREON BCISE [Suspect]
     Active Substance: EXENATIDE
     Indication: Type 2 diabetes mellitus
     Dates: start: 20240212

REACTIONS (3)
  - Injection site haemorrhage [Unknown]
  - Device delivery system issue [Unknown]
  - Device use issue [Unknown]
